FAERS Safety Report 16612045 (Version 1)
Quarter: 2019Q3

REPORT INFORMATION
  Report Type: Spontaneous
  Country: US (occurrence: US)
  Receive Date: 20190722
  Receipt Date: 20190722
  Transmission Date: 20191004
  Serious: No
  Sender: FDA-Public Use
  Company Number: US-ALNYLAM PHARMACEUTICALS, INC.-ALN-2019-000471

PATIENT
  Age: 53 Year
  Sex: Male
  Weight: 101.77 kg

DRUGS (2)
  1. DEXAMETHASONE. [Suspect]
     Active Substance: DEXAMETHASONE
     Indication: PROPHYLAXIS
     Dosage: UNK UNK, Q3W
     Route: 042
     Dates: start: 20190514
  2. ONPATTRO [Suspect]
     Active Substance: PATISIRAN SODIUM
     Indication: HEREDITARY NEUROPATHIC AMYLOIDOSIS
     Dosage: 28 MILLIGRAM, Q3W
     Route: 042
     Dates: start: 20190514

REACTIONS (4)
  - Infusion related reaction [Unknown]
  - Restless legs syndrome [Unknown]
  - Tachycardia [Recovered/Resolved with Sequelae]
  - Hypertension [Recovered/Resolved]

NARRATIVE: CASE EVENT DATE: 20190625
